FAERS Safety Report 13800710 (Version 1)
Quarter: 2017Q3

REPORT INFORMATION
  Report Type: Spontaneous
  Country: FR (occurrence: FR)
  Receive Date: 20170727
  Receipt Date: 20170727
  Transmission Date: 20171127
  Serious: Yes (Death, Congenital Anomaly)
  Sender: FDA-Public Use
  Company Number: FR-JNJFOC-20170719125

PATIENT
  Age: 0 Year
  Sex: Male

DRUGS (3)
  1. LARGACTIL [Suspect]
     Active Substance: CHLORPROMAZINE
     Indication: PRODUCT USED FOR UNKNOWN INDICATION
     Route: 064
     Dates: end: 20170220
  2. HALDOL [Suspect]
     Active Substance: HALOPERIDOL
     Indication: PRODUCT USED FOR UNKNOWN INDICATION
     Route: 064
     Dates: end: 20170220
  3. TEGRETOL [Suspect]
     Active Substance: CARBAMAZEPINE
     Indication: PRODUCT USED FOR UNKNOWN INDICATION
     Route: 064
     Dates: end: 20170220

REACTIONS (5)
  - Univentricular heart [Fatal]
  - Congenital aortic stenosis [Fatal]
  - Double outlet right ventricle [Fatal]
  - Foetal exposure during pregnancy [Fatal]
  - Mitral valve atresia [Fatal]

NARRATIVE: CASE EVENT DATE: 20170201
